FAERS Safety Report 8161301 (Version 4)
Quarter: 2013Q1

REPORT INFORMATION
  Report Type: Report from Study
  Country: US (occurrence: US)
  Receive Date: 20110929
  Receipt Date: 20130329
  Transmission Date: 20140127
  Serious: Yes (Other)
  Sender: FDA-Public Use
  Company Number: US-UCBSA-042072

PATIENT
  Age: 33 Year
  Sex: Female

DRUGS (5)
  1. KEPPRA [Suspect]
     Indication: EPILEPSY
     Dates: start: 20101209
  2. LEVETIRACETAM [Suspect]
     Indication: CONVULSION
     Dosage: DAILY DOSE: 1000 MG
     Dates: end: 20101208
  3. PRENATAL VITAMINS [Concomitant]
     Indication: PREGNANCY
     Dosage: 1 PILL QD
     Route: 048
     Dates: start: 201010
  4. FOLIC ACID [Concomitant]
     Indication: PREGNANCY
     Route: 048
     Dates: start: 201010
  5. PROGESTERONE [Concomitant]
     Dates: start: 20101222

REACTIONS (3)
  - Premature delivery [Recovered/Resolved]
  - Convulsion [Unknown]
  - Exposure during pregnancy [Recovered/Resolved]
